FAERS Safety Report 7397245-8 (Version None)
Quarter: 2011Q2

REPORT INFORMATION
  Report Type: 
  Country: None (occurrence: None)
  Receive Date: 20110406
  Receipt Date: 20110208
  Transmission Date: 20111010
  Serious: Yes (Other)
  Sender: FDA-Public Use
  Company Number: US-BAYER-200942444NA

PATIENT
  Sex: Male

DRUGS (12)
  1. VANCOMYCIN [Concomitant]
     Dosage: UNK
     Dates: start: 20040715
  2. LANOXIN [Concomitant]
  3. CARDIZEM [Concomitant]
  4. OXACILLIN [Concomitant]
  5. CONTRAST MEDIA [Concomitant]
     Indication: ARTERIOGRAM CORONARY
     Dosage: UNK
     Dates: start: 20040723
  6. PROTONIX [Concomitant]
  7. ALTACE [Concomitant]
  8. MULTI-VITAMIN [Concomitant]
  9. LASIX [Concomitant]
  10. HABITROL [Concomitant]
     Dosage: 21 MG, QD
  11. TRASYLOL [Suspect]
     Indication: PRODUCT USED FOR UNKNOWN INDICATION
     Route: 042
     Dates: start: 20040728
  12. GENTAMICIN [Concomitant]
     Dosage: UNK
     Dates: start: 20040723

REACTIONS (10)
  - RENAL IMPAIRMENT [None]
  - RENAL INJURY [None]
  - RENAL FAILURE [None]
  - PAIN [None]
  - ANXIETY [None]
  - EMOTIONAL DISTRESS [None]
  - INJURY [None]
  - STRESS [None]
  - UNEVALUABLE EVENT [None]
  - FEAR [None]
